FAERS Safety Report 20852245 (Version 2)
Quarter: 2022Q3

REPORT INFORMATION
  Report Type: Report from Study
  Country: US (occurrence: None)
  Receive Date: 20220520
  Receipt Date: 20220705
  Transmission Date: 20221027
  Serious: Yes (Hospitalization, Other)
  Sender: FDA-Public Use
  Company Number: US-Merck Healthcare KGaA-9141680

PATIENT
  Age: 57 Year
  Sex: Female

DRUGS (2)
  1. REBIF [Suspect]
     Active Substance: INTERFERON BETA-1A
     Indication: Product used for unknown indication
     Route: 058
     Dates: start: 20040502, end: 201912
  2. REBIF [Suspect]
     Active Substance: INTERFERON BETA-1A
     Dosage: PREFILLED SYRINGE

REACTIONS (8)
  - Bladder operation [Recovered/Resolved]
  - Uterine prolapse [Unknown]
  - Post procedural complication [Recovered/Resolved]
  - Atrial fibrillation [Unknown]
  - Blood pressure decreased [Unknown]
  - Hypervolaemia [Unknown]
  - Hydronephrosis [Unknown]
  - Dyspnoea [Unknown]

NARRATIVE: CASE EVENT DATE: 20191201
